FAERS Safety Report 6491097-6 (Version None)
Quarter: 2009Q4

REPORT INFORMATION
  Report Type: 
  Country: None (occurrence: None)
  Receive Date: 20091211
  Receipt Date: 20091201
  Transmission Date: 20100525
  Serious: Yes (Death)
  Sender: FDA-Public Use
  Company Number: US-PFIZER INC-2009304744

PATIENT
  Age: 15 Year
  Sex: Male

DRUGS (4)
  1. ALPRAZOLAM [Suspect]
  2. METHADONE [Suspect]
  3. HYDROCODONE [Suspect]
  4. OXYCODONE [Suspect]

REACTIONS (1)
  - MULTIPLE DRUG OVERDOSE ACCIDENTAL [None]
